FAERS Safety Report 5239801-9 (Version None)
Quarter: 2007Q1

REPORT INFORMATION
  Report Type: 
  Country: None (occurrence: None)
  Receive Date: 20070216
  Receipt Date: 20070208
  Transmission Date: 20070707
  Serious: Yes (Other)
  Sender: FDA-Public Use
  Company Number: US-ELI_LILLY_AND_COMPANY-US200611005257

PATIENT
  Age: 83 Year
  Sex: Male

DRUGS (6)
  1. ALIMTA [Suspect]
     Indication: LUNG NEOPLASM MALIGNANT
     Dates: start: 20060829
  2. GEMZAR [Suspect]
     Indication: LUNG NEOPLASM MALIGNANT
     Dosage: 1940 MG, UNK
     Route: 042
     Dates: start: 20060822
  3. VITAMIN B-12 [Concomitant]
     Indication: VITAMIN SUPPLEMENTATION
     Dosage: 1000 UG, UNKNOWN
     Route: 030
     Dates: start: 20060822, end: 20061011
  4. FOLIC ACID [Concomitant]
     Indication: VITAMIN SUPPLEMENTATION
     Dosage: 1 MG, DAILY (1/D)
     Route: 048
     Dates: start: 20060822, end: 20061011
  5. CORTICOSTEROID NOS [Concomitant]
     Dosage: 4 MG, 2/D
     Route: 048
     Dates: start: 20060829
  6. NEULASTA [Concomitant]

REACTIONS (4)
  - GANGRENE [None]
  - TUMOUR EMBOLISM [None]
  - WHITE BLOOD CELL COUNT DECREASED [None]
  - WOUND NECROSIS [None]
